FAERS Safety Report 9004760 (Version 2)
Quarter: 2013Q1

REPORT INFORMATION
  Report Type: Spontaneous
  Country: JP (occurrence: None)
  Receive Date: 20121227
  Receipt Date: 20130109
  Transmission Date: 20140127
  Serious: No
  Sender: FDA-Public Use
  Company Number: SPI201200381

PATIENT
  Age: 41 Year
  Sex: Female

DRUGS (1)
  1. AMITIZA [Suspect]
     Indication: CONSTIPATION
     Route: 048
     Dates: start: 20121207, end: 20121207

REACTIONS (6)
  - Nausea [None]
  - Abdominal discomfort [None]
  - Palpitations [None]
  - Dyspnoea [None]
  - Abdominal pain upper [None]
  - Choking sensation [None]
